FAERS Safety Report 12367204 (Version 1)
Quarter: 2016Q2

REPORT INFORMATION
  Report Type: Spontaneous
  Country: US (occurrence: US)
  Receive Date: 20160513
  Receipt Date: 20160513
  Transmission Date: 20160815
  Serious: No
  Sender: FDA-Public Use
  Company Number: US-LPDUSPRD-20160121

PATIENT
  Sex: Female

DRUGS (3)
  1. VITAMINS, UNSPECIFIED [Concomitant]
     Dosage: TAKES DAILY, DOSE NOT SPEC.
     Route: 048
  2. INJECTAFER [Suspect]
     Active Substance: FERRIC CARBOXYMALTOSE
     Dosage: 750 MG
     Route: 042
     Dates: start: 20160115, end: 20160115
  3. ATIVAN [Concomitant]
     Active Substance: LORAZEPAM
     Dosage: TAKEN AS NEEDED
     Route: 048

REACTIONS (3)
  - Nausea [Recovered/Resolved]
  - Headache [Recovered/Resolved]
  - Dizziness [Recovered/Resolved]

NARRATIVE: CASE EVENT DATE: 20160115
